FAERS Safety Report 20832335 (Version 1)
Quarter: 2022Q2

REPORT INFORMATION
  Report Type: Spontaneous
  Country: None (occurrence: None)
  Receive Date: 20220516
  Receipt Date: 20220516
  Transmission Date: 20220721
  Serious: No
  Sender: FDA-Public Use
  Company Number: CA-ROCHE-3093558

PATIENT

DRUGS (9)
  1. ACTEMRA [Suspect]
     Active Substance: TOCILIZUMAB
  2. ACTEMRA [Suspect]
     Active Substance: TOCILIZUMAB
  3. COVID-19 VACCINE NOS [Suspect]
     Active Substance: COVID-19 VACCINE NOS
  4. TYLENOL [Concomitant]
     Active Substance: ACETAMINOPHEN
  5. ARAVA [Concomitant]
     Active Substance: LEFLUNOMIDE
  6. FOLIC ACID [Concomitant]
     Active Substance: FOLIC ACID
  7. ARTHROTEC [Concomitant]
     Active Substance: DICLOFENAC SODIUM\MISOPROSTOL
  8. PREDNISONE [Concomitant]
     Active Substance: PREDNISONE
  9. METHOTREXATE [Concomitant]
     Active Substance: METHOTREXATE

REACTIONS (8)
  - Feeding disorder [None]
  - Dizziness [None]
  - Cough [None]
  - Asthenia [None]
  - Headache [None]
  - Morbid thoughts [None]
  - Pyrexia [None]
  - Malaise [None]
